FAERS Safety Report 7286452-0 (Version None)
Quarter: 2011Q1

REPORT INFORMATION
  Report Type: 
  Country: None (occurrence: None)
  Receive Date: 20110210
  Receipt Date: 20110208
  Transmission Date: 20110831
  Serious: Yes (Other)
  Sender: FDA-Public Use
  Company Number: US-PFIZER INC-2010163999

PATIENT
  Sex: Female

DRUGS (2)
  1. CHANTIX [Suspect]
     Indication: SMOKING CESSATION THERAPY
     Dosage: 0.5 MG, 1X/DAY
     Route: 048
     Dates: start: 20090101, end: 20090101
  2. PRENATAL VITAMINS [Concomitant]
     Dosage: UNK

REACTIONS (20)
  - FLUSHING [None]
  - CHEST PAIN [None]
  - DISTURBANCE IN ATTENTION [None]
  - EYE PAIN [None]
  - MEMORY IMPAIRMENT [None]
  - MOOD ALTERED [None]
  - VERTIGO [None]
  - MIGRAINE [None]
  - HYPERHIDROSIS [None]
  - LIBIDO DECREASED [None]
  - PHOTOPHOBIA [None]
  - DIZZINESS [None]
  - VISION BLURRED [None]
  - BALANCE DISORDER [None]
  - HYPERACUSIS [None]
  - DIPLOPIA [None]
  - VISUAL IMPAIRMENT [None]
  - DIARRHOEA [None]
  - EAR PAIN [None]
  - NAUSEA [None]
